FAERS Safety Report 5796647-0 (Version None)
Quarter: 2008Q3

REPORT INFORMATION
  Report Type: 
  Country: None (occurrence: None)
  Receive Date: 20080701
  Receipt Date: 20080630
  Transmission Date: 20090109
  Serious: Yes (Hospitalization)
  Sender: FDA-Public Use
  Company Number: PHHO2005CZ01331

PATIENT
  Sex: Female
  Weight: 94 kg

DRUGS (4)
  1. ACLASTA/ZOLEDRONATE T29581+A+SOLINJ+OS [Suspect]
     Indication: OSTEOPOROSIS
     Dosage: 5MG
     Dates: start: 20050119
  2. VITAMIN D [Concomitant]
     Indication: OSTEOPOROSIS
  3. CALCIUM CARBONATE [Concomitant]
     Indication: OSTEOPOROSIS
  4. TRAMAL [Concomitant]
     Indication: MYALGIA
     Dosage: 1.5 ML, UNK
     Route: 048
     Dates: start: 20050120

REACTIONS (4)
  - CHILLS [None]
  - MYALGIA [None]
  - PYREXIA [None]
  - TREMOR [None]
